FAERS Safety Report 15302616 (Version 8)
Quarter: 2018Q4

REPORT INFORMATION
  Report Type: Report from Study
  Country: US (occurrence: US)
  Receive Date: 20180821
  Receipt Date: 20181205
  Transmission Date: 20190204
  Serious: Yes (Other)
  Sender: FDA-Public Use
  Company Number: US-PFIZER INC-2018329504

PATIENT
  Age: 62 Year
  Sex: Male
  Weight: 82.99 kg

DRUGS (34)
  1. LITHIUM. [Suspect]
     Active Substance: LITHIUM
     Indication: BIPOLAR DISORDER
     Dosage: 300 MG, 4X/DAY(QID)
     Route: 048
     Dates: start: 20180719
  2. BRINTELLIX [Concomitant]
     Active Substance: VORTIOXETINE HYDROBROMIDE
     Indication: DEPRESSION
     Dosage: UNK
  3. SEROQUEL [Concomitant]
     Active Substance: QUETIAPINE FUMARATE
     Indication: BIPOLAR DISORDER
     Dosage: UNK
     Dates: start: 20170719
  4. BLINDED PLACEBO [Suspect]
     Active Substance: INVESTIGATIONAL PRODUCT
     Indication: CLOSTRIDIUM DIFFICILE IMMUNISATION
     Dosage: SINGLE DOSE
     Route: 030
     Dates: start: 20180813, end: 20180813
  5. BLINDED PF-06425090 [Suspect]
     Active Substance: INVESTIGATIONAL PRODUCT
     Dosage: SINGLE DOSE
     Route: 030
     Dates: start: 20180302, end: 20180302
  6. TRAZODONE HYDROCHLORIDE. [Concomitant]
     Active Substance: TRAZODONE HYDROCHLORIDE
     Dosage: UNK
  7. ABILIFY [Suspect]
     Active Substance: ARIPIPRAZOLE
     Indication: DEPRESSION
     Dosage: 10 MG, DAILY
     Route: 048
     Dates: start: 20170719
  8. TEMAZEPAM. [Concomitant]
     Active Substance: TEMAZEPAM
     Indication: ANXIETY
     Dosage: UNK
  9. HYDROCHLOROTHIAZIDE. [Concomitant]
     Active Substance: HYDROCHLOROTHIAZIDE
     Indication: OEDEMA
     Dosage: UNK
     Dates: start: 20170708
  10. BLINDED PF-06425090 [Suspect]
     Active Substance: INVESTIGATIONAL PRODUCT
     Indication: CLOSTRIDIUM DIFFICILE IMMUNISATION
     Dosage: SINGLE DOSE
     Route: 030
     Dates: start: 20180813, end: 20180813
  11. BLINDED PLACEBO [Suspect]
     Active Substance: INVESTIGATIONAL PRODUCT
     Dosage: SINGLE DOSE
     Route: 030
     Dates: start: 20180302, end: 20180302
  12. BLINDED PF-06425090 [Suspect]
     Active Substance: INVESTIGATIONAL PRODUCT
     Dosage: SINGLE DOSE
     Route: 030
     Dates: start: 20180202, end: 20180202
  13. BLINDED PLACEBO [Suspect]
     Active Substance: INVESTIGATIONAL PRODUCT
     Dosage: SINGLE DOSE
     Route: 030
     Dates: start: 20180302, end: 20180302
  14. FLOMAX [Concomitant]
     Active Substance: TAMSULOSIN HYDROCHLORIDE
     Indication: BENIGN PROSTATIC HYPERPLASIA
     Dosage: UNK
     Dates: start: 20101014
  15. MELOXICAM. [Concomitant]
     Active Substance: MELOXICAM
     Indication: BACK PAIN
     Dosage: UNK
  16. KETOROLAC TROMETHAMINE. [Concomitant]
     Active Substance: KETOROLAC TROMETHAMINE
     Indication: HEADACHE
     Dosage: UNK
     Dates: start: 20151102
  17. BLINDED PLACEBO [Suspect]
     Active Substance: INVESTIGATIONAL PRODUCT
     Indication: CLOSTRIDIUM DIFFICILE IMMUNISATION
     Dosage: SINGLE DOSE
     Route: 030
     Dates: start: 20180813, end: 20180813
  18. BLINDED PLACEBO [Suspect]
     Active Substance: INVESTIGATIONAL PRODUCT
     Dosage: SINGLE DOSE
     Route: 030
     Dates: start: 20180202, end: 20180202
  19. MIRTAZAPINE. [Concomitant]
     Active Substance: MIRTAZAPINE
     Indication: DEPRESSION
     Dosage: UNK
     Dates: start: 20130802
  20. SPIRIVA RESPIMAT [Concomitant]
     Active Substance: TIOTROPIUM BROMIDE
     Indication: CHRONIC OBSTRUCTIVE PULMONARY DISEASE
     Dosage: UNK
     Dates: start: 20180211
  21. ADVAIR DISKUS [Concomitant]
     Active Substance: FLUTICASONE PROPIONATE\SALMETEROL XINAFOATE
     Indication: CHRONIC OBSTRUCTIVE PULMONARY DISEASE
     Dosage: UNK
     Dates: start: 20130211
  22. BLINDED PF-06425090 [Suspect]
     Active Substance: INVESTIGATIONAL PRODUCT
     Indication: CLOSTRIDIUM DIFFICILE IMMUNISATION
     Dosage: SINGLE DOSE
     Route: 030
     Dates: start: 20180813, end: 20180813
  23. BLINDED PLACEBO [Suspect]
     Active Substance: INVESTIGATIONAL PRODUCT
     Dosage: SINGLE DOSE
     Route: 030
     Dates: start: 20180202, end: 20180202
  24. HYDROCHLOROTHIAZIDE/PROPRANOLOL HYDROCHLORIDE [Suspect]
     Active Substance: HYDROCHLOROTHIAZIDE\PROPRANOLOL HYDROCHLORIDE
     Indication: HEADACHE
     Dosage: 20 MG, 2X/DAY
     Route: 048
     Dates: start: 20160218
  25. ARICEPT [Concomitant]
     Active Substance: DONEPEZIL HYDROCHLORIDE
     Indication: MEMORY IMPAIRMENT
     Dosage: UNK
     Dates: start: 20170719
  26. PERCOCET [Concomitant]
     Active Substance: ACETAMINOPHEN\OXYCODONE HYDROCHLORIDE
     Indication: BACK PAIN
     Dosage: UNK
     Dates: start: 20150729
  27. BLINDED PF-06425090 [Suspect]
     Active Substance: INVESTIGATIONAL PRODUCT
     Dosage: SINGLE DOSE
     Route: 030
     Dates: start: 20180302, end: 20180302
  28. BLINDED PF-06425090 [Suspect]
     Active Substance: INVESTIGATIONAL PRODUCT
     Dosage: SINGLE DOSE
     Route: 030
     Dates: start: 20180202, end: 20180202
  29. GABAPENTIN. [Suspect]
     Active Substance: GABAPENTIN
     Indication: HEADACHE
     Dosage: 600 MG, 3X/DAY
     Route: 048
     Dates: start: 20150430
  30. KLONOPIN [Suspect]
     Active Substance: CLONAZEPAM
     Indication: ANXIETY
     Dosage: 1 MG, DAILY
     Route: 048
     Dates: start: 20130812
  31. ADDERALL [Suspect]
     Active Substance: AMPHETAMINE ASPARTATE\AMPHETAMINE SULFATE\DEXTROAMPHETAMINE SACCHARATE\DEXTROAMPHETAMINE SULFATE
     Indication: ATTENTION DEFICIT/HYPERACTIVITY DISORDER
     Dosage: 30 MG, 3X/DAY
     Route: 048
     Dates: start: 20130812
  32. SEROQUEL [Concomitant]
     Active Substance: QUETIAPINE FUMARATE
     Indication: DEPRESSION
  33. PAXIL [Concomitant]
     Active Substance: PAROXETINE HYDROCHLORIDE
     Indication: DEPRESSION
     Dosage: UNK
     Dates: start: 20180719
  34. PROTONIX [Concomitant]
     Active Substance: PANTOPRAZOLE SODIUM
     Indication: GASTROOESOPHAGEAL REFLUX DISEASE
     Dosage: UNK
     Dates: start: 20151102

REACTIONS (1)
  - Generalised tonic-clonic seizure [Not Recovered/Not Resolved]

NARRATIVE: CASE EVENT DATE: 20180725
